FAERS Safety Report 8078639-4 (Version None)
Quarter: 2012Q1

REPORT INFORMATION
  Report Type: 
  Country: None (occurrence: None)
  Receive Date: 20120127
  Receipt Date: 20110107
  Transmission Date: 20120608
  Serious: No
  Sender: FDA-Public Use
  Company Number: US-ABBOTT-11P-163-0696306-00

PATIENT
  Age: 48 Year
  Sex: Female

DRUGS (2)
  1. UNKNOWN THYROID MEDICATION [Concomitant]
     Indication: THYROIDECTOMY
  2. HUMIRA [Suspect]
     Indication: PSORIASIS
     Route: 058
     Dates: start: 20101230

REACTIONS (3)
  - FEELING COLD [None]
  - PARAESTHESIA [None]
  - HYPOAESTHESIA [None]
